FAERS Safety Report 8025334-3 (Version None)
Quarter: 2012Q1

REPORT INFORMATION
  Report Type: 
  Country: None (occurrence: None)
  Receive Date: 20120105
  Receipt Date: 20120102
  Transmission Date: 20120608
  Serious: Yes (Other)
  Sender: FDA-Public Use
  Company Number: CA-PFIZER INC-2011277176

PATIENT
  Age: 44 Year
  Sex: Female
  Weight: 91.156 kg

DRUGS (6)
  1. CITALOPRAM [Concomitant]
     Indication: AFFECTIVE DISORDER
     Dosage: 40 MG, 1X/DAY
     Route: 048
  2. ZIPRASIDONE HYDROCHLORIDE [Interacting]
     Dosage: 60 MG, 2X/DAY FOR ONE DAY
     Route: 048
     Dates: start: 20111021, end: 20111022
  3. TRAZODONE [Concomitant]
     Indication: AFFECTIVE DISORDER
     Dosage: 50 MG, 1X/DAY AT BEDTIME
     Route: 048
  4. CLOZARIL [Interacting]
     Indication: PSYCHOTIC DISORDER
     Dosage: 75 MG, 1X/DAY AT BEDTIME
     Route: 048
  5. LITHIUM [Concomitant]
     Indication: AFFECTIVE DISORDER
     Dosage: 300 MG, 1X/DAY AT BEDTIME
     Route: 048
  6. ZIPRASIDONE HYDROCHLORIDE [Suspect]
     Indication: SCHIZOAFFECTIVE DISORDER
     Dosage: 40 MG, 2X/DAY FOR ONE DAY
     Route: 048
     Dates: start: 20111020, end: 20111020

REACTIONS (6)
  - DRUG INTERACTION [None]
  - PARANOIA [None]
  - ANXIETY [None]
  - WEIGHT INCREASED [None]
  - PSYCHOTIC BEHAVIOUR [None]
  - TACHYPHRENIA [None]
